FAERS Safety Report 16882836 (Version 1)
Quarter: 2019Q4

REPORT INFORMATION
  Report Type: Spontaneous
  Country: FR (occurrence: FR)
  Receive Date: 20191004
  Receipt Date: 20191004
  Transmission Date: 20200122
  Serious: Yes (Hospitalization)
  Sender: FDA-Public Use
  Company Number: FR-SUN PHARMACEUTICAL INDUSTRIES LTD-2019RR-222123

PATIENT
  Age: 65 Year
  Sex: Female
  Weight: 67 kg

DRUGS (9)
  1. MEKINIST [Suspect]
     Active Substance: TRAMETINIB DIMETHYL SULFOXIDE
     Indication: MALIGNANT MELANOMA
     Dosage: 2 MILLIGRAM, DAILY
     Route: 048
     Dates: start: 20190829, end: 20190902
  2. CANDESARTAN HYDROCHLOROTHIAZIDE ZENTIVA 8 MG/12,5 MG, COMPRIME [Concomitant]
     Indication: PRODUCT USED FOR UNKNOWN INDICATION
     Dosage: (1)
     Route: 065
  3. KETOPROFEN. [Suspect]
     Active Substance: KETOPROFEN
     Indication: PERIARTHRITIS
     Dosage: 200 MILLIGRAM, DAILY
     Route: 048
     Dates: start: 20190826
  4. PENTOXIFYLLINE. [Concomitant]
     Active Substance: PENTOXIFYLLINE
     Indication: PRODUCT USED FOR UNKNOWN INDICATION
     Dosage: ()
     Route: 065
  5. LYRICA [Concomitant]
     Active Substance: PREGABALIN
     Indication: PRODUCT USED FOR UNKNOWN INDICATION
     Dosage: 150 MILLIGRAM, DAILY
     Route: 048
  6. MORPHINE [Concomitant]
     Active Substance: MORPHINE
     Indication: PRODUCT USED FOR UNKNOWN INDICATION
     Dosage: 80 MILLIGRAM, DAILY
     Route: 065
  7. OMEPRAZOLE. [Suspect]
     Active Substance: OMEPRAZOLE
     Indication: PERIARTHRITIS
     Dosage: 20 MILLIGRAM, DAILY
     Route: 048
     Dates: start: 20190826
  8. DOLIPRANE [Suspect]
     Active Substance: ACETAMINOPHEN
     Indication: PERIARTHRITIS
     Dosage: 1 GRAM, QID
     Route: 048
     Dates: start: 20190826
  9. TAFINLAR [Suspect]
     Active Substance: DABRAFENIB MESYLATE
     Indication: MALIGNANT MELANOMA
     Dosage: 300 MILLIGRAM, DAILY
     Route: 048
     Dates: start: 20190829, end: 20190902

REACTIONS (1)
  - Pancreatitis [Recovered/Resolved]

NARRATIVE: CASE EVENT DATE: 20190831
